FAERS Safety Report 5699154-9 (Version None)
Quarter: 2008Q2

REPORT INFORMATION
  Report Type: 
  Country: None (occurrence: None)
  Receive Date: 20080407
  Receipt Date: 20080407
  Transmission Date: 20081010
  Serious: Yes (Life-Threatening, Other)
  Sender: FDA-Public Use
  Company Number: None

PATIENT
  Age: 6 Year
  Sex: Male
  Weight: 22.6799 kg

DRUGS (2)
  1. SINGULAIR [Suspect]
     Indication: BRONCHIAL HYPERREACTIVITY
     Dosage: 5 MG 1 X DAILY PO
     Route: 048
     Dates: start: 20071001, end: 20080327
  2. SINGULAIR [Suspect]
     Indication: PROPHYLAXIS
     Dosage: 5 MG 1 X DAILY PO
     Route: 048
     Dates: start: 20071001, end: 20080327

REACTIONS (8)
  - ABNORMAL BEHAVIOUR [None]
  - AGGRESSION [None]
  - ANGER [None]
  - DEPRESSED MOOD [None]
  - IMPULSIVE BEHAVIOUR [None]
  - PERSONALITY CHANGE [None]
  - PHOBIA [None]
  - SELF ESTEEM DECREASED [None]
